FAERS Safety Report 4752841-9 (Version None)
Quarter: 2005Q3

REPORT INFORMATION
  Report Type: 
  Country: None (occurrence: None)
  Receive Date: 20050714
  Receipt Date: 20041102
  Transmission Date: 20060218
  Serious: Yes (Hospitalization, Other)
  Sender: FDA-Public Use
  Company Number: 200417083US

PATIENT
  Age: 65 Year
  Sex: Male

DRUGS (1)
  1. TAXOTERE [Suspect]
     Indication: PROSTATE CANCER METASTATIC
     Dosage: 150 MG
     Dates: start: 20040916, end: 20040916

REACTIONS (6)
  - APNOEA [None]
  - BLOOD PRESSURE INCREASED [None]
  - DEPRESSED LEVEL OF CONSCIOUSNESS [None]
  - ELECTROCARDIOGRAM ABNORMAL [None]
  - EYE ROLLING [None]
  - HYPERSENSITIVITY [None]
